FAERS Safety Report 7275276-6 (Version None)
Quarter: 2011Q1

REPORT INFORMATION
  Report Type: 
  Country: None (occurrence: None)
  Receive Date: 20110204
  Receipt Date: 20110121
  Transmission Date: 20110831
  Serious: Yes (Death)
  Sender: FDA-Public Use
  Company Number: AU-ROCHE-754941

PATIENT
  Sex: Male

DRUGS (6)
  1. ALPRAZOLAM [Suspect]
     Route: 065
  2. DOXYLAMINE [Suspect]
     Route: 065
  3. OXYCODONE HCL [Suspect]
     Route: 065
  4. DIAZEPAM [Suspect]
     Route: 065
  5. TEMAZEPAM [Suspect]
     Route: 065
  6. HYDROCODONE BITARTRATE [Suspect]
     Route: 065

REACTIONS (1)
  - DRUG ABUSE [None]
